FAERS Safety Report 4279724-5 (Version None)
Quarter: 2004Q1

REPORT INFORMATION
  Report Type: 
  Country: None (occurrence: None)
  Receive Date: 20040127
  Receipt Date: 20030120
  Transmission Date: 20041129
  Serious: Yes (Hospitalization)
  Sender: FDA-Public Use
  Company Number: WAES 0301FRA00075

PATIENT
  Age: 65 Year
  Sex: Female
  Weight: 56 kg

DRUGS (3)
  1. BUDESONIDE [Concomitant]
     Indication: ASTHMA
     Route: 055
  2. FORMOTEROL FUMARATE [Concomitant]
     Indication: ASTHMA
     Route: 055
  3. SINGULAIR [Suspect]
     Indication: ASTHMA
     Route: 048
     Dates: start: 20010701, end: 20020301

REACTIONS (3)
  - ALLERGIC GRANULOMATOUS ANGIITIS [None]
  - DISEASE RECURRENCE [None]
  - SINUSITIS [None]
